FAERS Safety Report 7573301-6 (Version None)
Quarter: 2011Q2

REPORT INFORMATION
  Report Type: 
  Country: None (occurrence: None)
  Receive Date: 20110627
  Receipt Date: 20110614
  Transmission Date: 20111010
  Serious: Yes (Death, Other)
  Sender: FDA-Public Use
  Company Number: PHHY2011BR52460

PATIENT
  Sex: Male
  Weight: 95 kg

DRUGS (1)
  1. EXELON [Suspect]
     Indication: SENILE DEMENTIA
     Dosage: 1 DF, QD
     Route: 062
     Dates: start: 20110426, end: 20110506

REACTIONS (3)
  - BIPOLAR DISORDER [None]
  - AGITATION [None]
  - RESPIRATORY FAILURE [None]
